FAERS Safety Report 20903446 (Version 2)
Quarter: 2022Q3

REPORT INFORMATION
  Report Type: Spontaneous
  Country: ZA (occurrence: ZA)
  Receive Date: 20220601
  Receipt Date: 20220719
  Transmission Date: 20221026
  Serious: Yes (Other)
  Sender: FDA-Public Use
  Company Number: ZA-JNJFOC-20220560112

PATIENT
  Age: 12 Year
  Sex: Male

DRUGS (1)
  1. METHYLPHENIDATE HYDROCHLORIDE [Suspect]
     Active Substance: METHYLPHENIDATE HYDROCHLORIDE
     Indication: Product used for unknown indication
     Route: 065
     Dates: start: 20220524, end: 20220528

REACTIONS (3)
  - Suicidal ideation [Recovered/Resolved]
  - Hyperventilation [Unknown]
  - Anger [Unknown]

NARRATIVE: CASE EVENT DATE: 20220526
